FAERS Safety Report 8432567-0 (Version None)
Quarter: 2012Q2

REPORT INFORMATION
  Report Type: 
  Country: None (occurrence: None)
  Receive Date: 20120607
  Receipt Date: 20120522
  Transmission Date: 20120825
  Serious: Yes (Death)
  Sender: FDA-Public Use
  Company Number: UCM201205-000050

PATIENT
  Age: 37 Year
  Sex: Female

DRUGS (7)
  1. DIVALPROEX SODIUM [Suspect]
     Indication: CONVULSION
     Dosage: 500 MG, TWO TIMES A DAY
  2. PHENYTOIN [Suspect]
     Indication: CONVULSION
     Dosage: INTRAVENOUS
     Route: 042
  3. LACTULOSE [Suspect]
  4. LEVETIRACETAM [Suspect]
  5. DIAZEPAM [Suspect]
     Indication: CONVULSION
  6. LEVOCARNITINE [Suspect]
  7. LORAZEPAM [Suspect]

REACTIONS (9)
  - REFUSAL OF TREATMENT BY PATIENT [None]
  - AGITATION [None]
  - INTERNATIONAL NORMALISED RATIO INCREASED [None]
  - BRAIN HERNIATION [None]
  - GRAND MAL CONVULSION [None]
  - PROTHROMBIN TIME PROLONGED [None]
  - ACUTE HEPATIC FAILURE [None]
  - BRAIN OEDEMA [None]
  - DELUSION [None]
